FAERS Safety Report 5311727-1 (Version None)
Quarter: 2007Q2

REPORT INFORMATION
  Report Type: 
  Country: None (occurrence: None)
  Receive Date: 20070430
  Receipt Date: 20070419
  Transmission Date: 20071010
  Serious: Yes (Other)
  Sender: FDA-Public Use
  Company Number: US-ROCHE-448987

PATIENT
  Age: 55 Year
  Sex: Female

DRUGS (3)
  1. PEGASYS [Suspect]
     Route: 065
     Dates: start: 20051210
  2. RIBAVIRIN [Suspect]
     Route: 048
     Dates: start: 20051210
  3. LASIX [Concomitant]
     Indication: FLUID RETENTION

REACTIONS (13)
  - ABDOMINAL PAIN [None]
  - BREAST MASS [None]
  - COUGH [None]
  - DEHYDRATION [None]
  - DRY SKIN [None]
  - DYSPEPSIA [None]
  - DYSPNOEA [None]
  - ECZEMA [None]
  - FATIGUE [None]
  - GASTRIC DISORDER [None]
  - MEMORY IMPAIRMENT [None]
  - VISION BLURRED [None]
  - WEIGHT DECREASED [None]
